FAERS Safety Report 9796385 (Version 2)
Quarter: 2014Q1

REPORT INFORMATION
  Report Type: Spontaneous
  Country: US (occurrence: US)
  Receive Date: 20140103
  Receipt Date: 20140131
  Transmission Date: 20141002
  Serious: No
  Sender: FDA-Public Use
  Company Number: US-009507513-1401USA000338

PATIENT
  Age: 48 Year
  Sex: Female
  Weight: 47.62 kg

DRUGS (3)
  1. CLARITIN-D-24 [Suspect]
     Indication: SINUS HEADACHE
     Dosage: 10 MG, ONCE
     Route: 048
     Dates: start: 20131217, end: 20131217
  2. CLARITIN-D-24 [Suspect]
     Indication: SINUS DISORDER
  3. TOPIRAMATE [Concomitant]
     Indication: MIGRAINE
     Dosage: UNK, UNKNOWN

REACTIONS (5)
  - Throat tightness [Unknown]
  - Paraesthesia [Recovered/Resolved]
  - Hypoaesthesia [Recovered/Resolved]
  - Neck pain [Recovered/Resolved]
  - Therapeutic response unexpected [Unknown]
